FAERS Safety Report 4383181-8 (Version None)
Quarter: 2004Q2

REPORT INFORMATION
  Report Type: 
  Country: None (occurrence: None)
  Receive Date: 20040618
  Receipt Date: 20040609
  Transmission Date: 20050107
  Serious: Yes (Death)
  Sender: FDA-Public Use
  Company Number: US-JNJFOC-20040405052

PATIENT
  Age: 64 Year
  Sex: Male
  Weight: 87.9978 kg

DRUGS (3)
  1. DURAGESIC [Suspect]
     Indication: PAIN
     Dosage: 75 UG/HR, 1 IN 48 HOUR, TRANSDERMAL
     Route: 062
     Dates: start: 20040101, end: 20040404
  2. PERCOCET (OXYCOCET) TABLETS [Concomitant]
  3. MORPHINE [Concomitant]

REACTIONS (2)
  - DISEASE PROGRESSION [None]
  - DRUG EFFECT DECREASED [None]
